FAERS Safety Report 14783454 (Version 1)
Quarter: 2018Q2

REPORT INFORMATION
  Report Type: Report from Study
  Country: US (occurrence: US)
  Receive Date: 20180420
  Receipt Date: 20180420
  Transmission Date: 20180711
  Serious: Yes (Hospitalization, Other)
  Sender: FDA-Public Use
  Company Number: US-COVIS PHARMA B.V.-2018COV01282

PATIENT
  Age: 39 Year
  Sex: Female
  Weight: 51.66 kg

DRUGS (30)
  1. LASIX [Concomitant]
     Active Substance: FUROSEMIDE
     Indication: JOINT SWELLING
     Dosage: 40 MG, QD
     Route: 048
  2. PRAMIPEXOLE. [Concomitant]
     Active Substance: PRAMIPEXOLE
     Indication: RESTLESS LEGS SYNDROME
     Dosage: 0.125 MG, QAM X1WEEK
  3. HYDROMORPHONE [Concomitant]
     Active Substance: HYDROMORPHONE
     Indication: PRODUCT USED FOR UNKNOWN INDICATION
     Dosage: UNK
     Route: 065
  4. ADVAIR HFA [Concomitant]
     Active Substance: FLUTICASONE PROPIONATE\SALMETEROL XINAFOATE
     Indication: PRODUCT USED FOR UNKNOWN INDICATION
     Dosage: 115/21, INHALE 2 PUFFS BID
     Route: 048
  5. LACTULOSE. [Concomitant]
     Active Substance: LACTULOSE
     Indication: PRODUCT USED FOR UNKNOWN INDICATION
     Dosage: UNK
     Route: 065
  6. XIFAXAN [Concomitant]
     Active Substance: RIFAXIMIN
     Indication: PRODUCT USED FOR UNKNOWN INDICATION
     Dosage: 550 MG, BID
     Route: 048
  7. AMPYRA [Suspect]
     Active Substance: DALFAMPRIDINE
     Indication: MULTIPLE SCLEROSIS
     Dosage: 10 MG, BID
     Route: 048
     Dates: start: 20170323, end: 20170816
  8. ONDANSETRON [Concomitant]
     Active Substance: ONDANSETRON
     Indication: PRODUCT USED FOR UNKNOWN INDICATION
     Dosage: UNK
     Route: 065
  9. FOLIC ACID. [Concomitant]
     Active Substance: FOLIC ACID
     Indication: PRODUCT USED FOR UNKNOWN INDICATION
     Dosage: 1 MG, QD
     Route: 065
  10. ESZOPICLONE. [Concomitant]
     Active Substance: ESZOPICLONE
     Indication: PRODUCT USED FOR UNKNOWN INDICATION
     Dosage: 1 MG, HS
     Route: 048
  11. DRONABINOL. [Concomitant]
     Active Substance: DRONABINOL
     Indication: PRODUCT USED FOR UNKNOWN INDICATION
     Dosage: UNK
     Route: 065
  12. PANTOPRAZOLE [Concomitant]
     Active Substance: PANTOPRAZOLE
     Indication: PRODUCT USED FOR UNKNOWN INDICATION
     Dosage: 40 MG, QD
     Route: 048
  13. POTASSIUM CHLORIDE. [Concomitant]
     Active Substance: POTASSIUM CHLORIDE
     Indication: PRODUCT USED FOR UNKNOWN INDICATION
     Dosage: 10 MCG, QD
     Route: 048
  14. PRAMIPEXOLE. [Concomitant]
     Active Substance: PRAMIPEXOLE
     Dosage: 0.125 MG, BID X1WEEK
  15. TIZANIDINE. [Suspect]
     Active Substance: TIZANIDINE
     Indication: PRODUCT USED FOR UNKNOWN INDICATION
     Dosage: UNK
     Route: 065
  16. AMPYRA [Suspect]
     Active Substance: DALFAMPRIDINE
     Indication: GAIT DISTURBANCE
     Dosage: 10 MG, BID
     Route: 048
     Dates: start: 20170323, end: 20170816
  17. MECLIZINE HCL [Concomitant]
     Active Substance: MECLIZINE HYDROCHLORIDE
     Indication: PRODUCT USED FOR UNKNOWN INDICATION
     Dosage: 12.5 MG, TID
     Route: 048
  18. RANITIDINE. [Concomitant]
     Active Substance: RANITIDINE
     Indication: PRODUCT USED FOR UNKNOWN INDICATION
     Dosage: 300 MG, HS, DURING IV AND ORAL STEROID USE
     Route: 048
  19. PROPRANOLOL [Concomitant]
     Active Substance: PROPRANOLOL HYDROCHLORIDE
     Indication: PRODUCT USED FOR UNKNOWN INDICATION
     Dosage: 20 MG, BID
     Route: 048
  20. TRAZODONE [Concomitant]
     Active Substance: TRAZODONE HYDROCHLORIDE
     Indication: PRODUCT USED FOR UNKNOWN INDICATION
     Dosage: 50 MG, HS
     Route: 048
  21. APAP CODEINE [Concomitant]
     Indication: PRODUCT USED FOR UNKNOWN INDICATION
     Dosage: UNK
     Route: 065
  22. LEVOTHYROXIN [Concomitant]
     Active Substance: LEVOTHYROXINE
     Indication: PRODUCT USED FOR UNKNOWN INDICATION
     Dosage: 25 MCG, QD BEFORE BREAKFAST
     Route: 048
  23. SPIRONOLACTON (ALDACTONE) [Concomitant]
     Indication: JOINT SWELLING
     Dosage: 100 MG, QD
     Route: 048
  24. LYRICA [Concomitant]
     Active Substance: PREGABALIN
     Indication: PRODUCT USED FOR UNKNOWN INDICATION
     Dosage: 300 MG, TID
     Route: 065
  25. RELPAX (ELETRIPTAN HBR) [Concomitant]
     Indication: MIGRAINE WITHOUT AURA
     Dosage: 40 MG, ONCE, AT HEADACHE ONSET, MAY REPEAT ONCE AFTER 2 HOURS PRN, MAX 2 PILLS/WEEK  6 PILLS/MONTH
     Route: 065
  26. NICOTINE TRANSDERMAL PATCH [Concomitant]
     Active Substance: NICOTINE
     Indication: SMOKING CESSATION THERAPY
     Dosage: 21 MG, QD, TO DIFFERENT SITE
     Route: 061
  27. PROAIR HFA [Concomitant]
     Active Substance: ALBUTEROL SULFATE
     Indication: PRODUCT USED FOR UNKNOWN INDICATION
     Dosage: 90 MCG, INHALE 2 PUFFS Q 4-6 HRS
     Route: 048
  28. VITAMIN D3 [Concomitant]
     Active Substance: CHOLECALCIFEROL
     Indication: VITAMIN C DEFICIENCY
     Dosage: 5000 IU, QD
     Route: 048
  29. PLEGRIDY [Concomitant]
     Active Substance: PEGINTERFERON BETA-1A
     Indication: MULTIPLE SCLEROSIS RELAPSE
     Dosage: 125 MCG/0.5ML, Q 2 WKS
     Route: 058
  30. PRAMIPEXOLE. [Concomitant]
     Active Substance: PRAMIPEXOLE
     Dosage: 0.125 MG, TID

REACTIONS (48)
  - Heart rate increased [Not Recovered/Not Resolved]
  - Fall [Recovered/Resolved with Sequelae]
  - Dyspnoea [Unknown]
  - Vomiting [Unknown]
  - Hallucination [Unknown]
  - Urinary incontinence [Unknown]
  - Neuropathy peripheral [Unknown]
  - Sensory loss [Unknown]
  - Mitral valve prolapse [Not Recovered/Not Resolved]
  - Hepatic encephalopathy [Unknown]
  - Mobility decreased [Recovered/Resolved with Sequelae]
  - Ecchymosis [Unknown]
  - Haematoma [Unknown]
  - Paresis [Unknown]
  - Ataxia [Unknown]
  - Anhedonia [Unknown]
  - Vitamin D deficiency [Unknown]
  - Papilloedema [Unknown]
  - Visual field defect [Unknown]
  - Dysarthria [Unknown]
  - Memory impairment [Unknown]
  - Gait disturbance [Unknown]
  - Nausea [Unknown]
  - Back pain [Unknown]
  - Fall [Recovered/Resolved with Sequelae]
  - Eye pain [Unknown]
  - Visual impairment [Not Recovered/Not Resolved]
  - Temperature intolerance [Unknown]
  - Gait spastic [Unknown]
  - Muscle spasticity [Unknown]
  - Dizziness [Unknown]
  - Contusion [Recovered/Resolved with Sequelae]
  - Muscle spasms [Not Recovered/Not Resolved]
  - Mood swings [Unknown]
  - Demyelination [Unknown]
  - Corneal scar [Unknown]
  - Drug ineffective [Unknown]
  - Peripheral swelling [Not Recovered/Not Resolved]
  - Migraine [Unknown]
  - Restless legs syndrome [Not Recovered/Not Resolved]
  - Wheezing [Unknown]
  - Status migrainosus [Unknown]
  - Muscle atrophy [Unknown]
  - Skin burning sensation [Unknown]
  - Somnolence [Unknown]
  - Cough [Unknown]
  - Insomnia [Unknown]
  - Multiple sclerosis relapse [Unknown]

NARRATIVE: CASE EVENT DATE: 2017
